FAERS Safety Report 4855487-7 (Version None)
Quarter: 2005Q4

REPORT INFORMATION
  Report Type: 
  Country: None (occurrence: None)
  Receive Date: 20051216
  Receipt Date: 20051206
  Transmission Date: 20060501
  Serious: Yes (Hospitalization, Other)
  Sender: FDA-Public Use
  Company Number: US-JNJFOC-20051201815

PATIENT
  Sex: Female
  Weight: 46.27 kg

DRUGS (5)
  1. REMICADE [Suspect]
     Indication: RHEUMATOID ARTHRITIS
     Route: 042
  2. PROTONIX [Concomitant]
  3. SULCRAFATE [Concomitant]
  4. MULTIVIT [Concomitant]
  5. CALCIUM GLUCONATE [Concomitant]

REACTIONS (3)
  - INTESTINAL OBSTRUCTION [None]
  - OVARIAN EPITHELIAL CANCER [None]
  - WEIGHT DECREASED [None]
